FAERS Safety Report 4774481-8 (Version None)
Quarter: 2005Q3

REPORT INFORMATION
  Report Type: 
  Country: None (occurrence: None)
  Receive Date: 20050919
  Receipt Date: 20050919
  Transmission Date: 20060218
  Serious: Yes (Death, Hospitalization)
  Sender: FDA-Public Use
  Company Number: None

PATIENT
  Age: 81 Year
  Sex: Female
  Weight: 99 kg

DRUGS (3)
  1. ERBITUX 400 MG /M2 X 1 250 MG/M2 [Suspect]
     Indication: PANCREATIC CARCINOMA
     Dosage: WEEKLY IV
     Route: 042
     Dates: start: 20050727, end: 20050809
  2. GEMCITABINE 50 MG /M2 [Suspect]
     Dosage: 2X WEEK IV
     Route: 042
     Dates: start: 20050802, end: 20050812
  3. RADIATION [Concomitant]

REACTIONS (5)
  - EMBOLISM [None]
  - HAEMORRHAGE INTRACRANIAL [None]
  - INFARCTION [None]
  - LOSS OF CONSCIOUSNESS [None]
  - PYREXIA [None]
